FAERS Safety Report 6103272-0 (Version None)
Quarter: 2009Q1

REPORT INFORMATION
  Report Type: 
  Country: None (occurrence: None)
  Receive Date: 20090305
  Receipt Date: 20090225
  Transmission Date: 20090719
  Serious: Yes (Other)
  Sender: FDA-Public Use
  Company Number: JP-ABBOTT-08P-087-0493597-00

PATIENT
  Sex: Male

DRUGS (6)
  1. KALETRA [Suspect]
     Indication: HIV INFECTION
     Dosage: 4 TABLETS, 800/200MG, DAILY
     Route: 048
     Dates: start: 20070401
  2. LAMIVUDINE [Concomitant]
     Indication: HIV INFECTION
     Route: 048
     Dates: start: 20070401
  3. STAVUDINE [Concomitant]
     Indication: HIV INFECTION
     Dosage: 40MG, DAILY
     Route: 048
     Dates: start: 20070401
  4. ALLOPURINOL [Concomitant]
     Indication: HYPERURICAEMIA
     Route: 048
     Dates: start: 20070401
  5. ALLOPURINOL [Concomitant]
     Indication: PROPHYLAXIS
  6. DIPYRIDAMOLE [Concomitant]
     Indication: PROTEIN URINE
     Route: 048
     Dates: start: 20080109

REACTIONS (3)
  - HYPERKALAEMIA [None]
  - HYPERTENSION [None]
  - PROTEIN URINE PRESENT [None]
